FAERS Safety Report 9514498 (Version 3)
Quarter: 2014Q1

REPORT INFORMATION
  Report Type: Report from Study
  Country: US (occurrence: US)
  Receive Date: 20130911
  Receipt Date: 20140122
  Transmission Date: 20141002
  Serious: Yes (Other)
  Sender: FDA-Public Use
  Company Number: US-ROCHE-1264594

PATIENT
  Age: 74 Year
  Sex: Female

DRUGS (5)
  1. AVASTIN [Suspect]
     Indication: AGE-RELATED MACULAR DEGENERATION
     Route: 065
  2. LUCENTIS [Suspect]
     Indication: AGE-RELATED MACULAR DEGENERATION
     Dosage: LEFT EYE
     Route: 050
  3. DIAZEPAM [Concomitant]
     Route: 065
  4. AMLODIPINE [Concomitant]
     Route: 065
  5. VITAMIN B12 [Concomitant]
     Route: 065

REACTIONS (9)
  - Eye irritation [Unknown]
  - Visual impairment [Unknown]
  - Visual impairment [Unknown]
  - Eye pain [Unknown]
  - Vision blurred [Unknown]
  - Asthenopia [Unknown]
  - Vision blurred [Unknown]
  - Photosensitivity reaction [Unknown]
  - Vitreous floaters [Unknown]
